FAERS Safety Report 8756324 (Version 2)
Quarter: 2012Q4

REPORT INFORMATION
  Report Type: Report from Study
  Country: US (occurrence: US)
  Receive Date: 20120828
  Receipt Date: 20120920
  Transmission Date: 20130627
  Serious: Yes (Other)
  Sender: FDA-Public Use
  Company Number: US-JNJFOC-20120812816

PATIENT
  Age: 55 Year
  Sex: Male
  Weight: 102.06 kg

DRUGS (4)
  1. STELARA [Suspect]
     Indication: PSORIASIS
     Route: 058
     Dates: start: 20120817
  2. GABAPENTIN [Concomitant]
     Route: 048
  3. GLIMEPIRIDE [Concomitant]
     Indication: DIABETES MELLITUS
     Route: 049
     Dates: start: 2011
  4. ZYRTEC [Concomitant]
     Indication: MULTIPLE ALLERGIES
     Route: 048

REACTIONS (8)
  - Cerebrovascular accident [Recovered/Resolved]
  - Hypertension [Not Recovered/Not Resolved]
  - Blood cholesterol increased [Unknown]
  - Blood pressure fluctuation [Not Recovered/Not Resolved]
  - Blood pressure increased [Not Recovered/Not Resolved]
  - Nasopharyngitis [Not Recovered/Not Resolved]
  - Dizziness [Recovering/Resolving]
  - Dyspnoea [Unknown]
